FAERS Safety Report 11713840 (Version 1)
Quarter: 2015Q4

REPORT INFORMATION
  Report Type: Spontaneous
  Country: US (occurrence: None)
  Receive Date: 20151106
  Receipt Date: 20151106
  Transmission Date: 20160304
  Serious: No
  Sender: FDA-Public Use
  Company Number: None

PATIENT
  Age: 60 Year
  Sex: Male

DRUGS (5)
  1. DESOXIMETAS [Concomitant]
  2. HYDROCO/APAP [Concomitant]
     Active Substance: ACETAMINOPHEN\HYDROCODONE
  3. LOVASTATIN. [Concomitant]
     Active Substance: LOVASTATIN
  4. ATORVASTATIN [Concomitant]
     Active Substance: ATORVASTATIN
  5. SILDENAFIL 20MG GREENSTONE [Suspect]
     Active Substance: SILDENAFIL
     Indication: OESOPHAGITIS
     Route: 048
     Dates: start: 201510

REACTIONS (3)
  - Hyperphagia [None]
  - Weight increased [None]
  - Incorrect dose administered [None]
